FAERS Safety Report 9925031 (Version 1)
Quarter: 2014Q1

REPORT INFORMATION
  Report Type: Spontaneous
  Country: US (occurrence: None)
  Receive Date: 20140225
  Receipt Date: 20140225
  Transmission Date: 20141002
  Serious: Yes (Disabling)
  Sender: FDA-Public Use
  Company Number: None

PATIENT
  Age: 60 Year
  Sex: Male
  Weight: 131.54 kg

DRUGS (1)
  1. CIPROFLOXACIN [Suspect]
     Indication: ABSCESS DRAINAGE
     Dosage: 400 MG ?TWICE DAILY ?INTO A VEIN
     Dates: start: 20130404, end: 20130410

REACTIONS (3)
  - Neuropathy peripheral [None]
  - Abasia [None]
  - Muscle atrophy [None]
